FAERS Safety Report 10034146 (Version 2)
Quarter: 2014Q2

REPORT INFORMATION
  Report Type: Spontaneous
  Country: FR (occurrence: FR)
  Receive Date: 20140325
  Receipt Date: 20140520
  Transmission Date: 20141212
  Serious: Yes (Death)
  Sender: FDA-Public Use
  Company Number: FR-ROCHE-1370797

PATIENT
  Sex: Female

DRUGS (6)
  1. PERJETA [Suspect]
     Indication: BREAST CANCER METASTATIC
     Route: 042
     Dates: start: 20140206, end: 20140207
  2. HERCEPTIN [Concomitant]
     Indication: BREAST CANCER METASTATIC
     Route: 042
     Dates: start: 20140206, end: 20140207
  3. TAXOTERE [Concomitant]
     Indication: BREAST CANCER METASTATIC
     Route: 042
     Dates: start: 20140207, end: 20140207
  4. DUROGESIC [Concomitant]
     Indication: PAIN
     Route: 003
  5. ATACAND [Concomitant]
  6. LIPANTHYL [Concomitant]

REACTIONS (2)
  - Pain [Fatal]
  - Abnormal behaviour [Fatal]
